FAERS Safety Report 7773207-3 (Version None)
Quarter: 2011Q3

REPORT INFORMATION
  Report Type: 
  Country: None (occurrence: None)
  Receive Date: 20110922
  Receipt Date: 20110919
  Transmission Date: 20111222
  Serious: Yes (Death)
  Sender: FDA-Public Use
  Company Number: US-SANOFI-AVENTIS-2011SA061182

PATIENT
  Age: 96 Year
  Sex: Female

DRUGS (1)
  1. PLAVIX [Suspect]
     Route: 065

REACTIONS (3)
  - CARDIAC DISORDER [None]
  - URINARY TRACT INFECTION [None]
  - MULTI-ORGAN FAILURE [None]
